FAERS Safety Report 9360894 (Version 2)
Quarter: 2013Q3

REPORT INFORMATION
  Report Type: Spontaneous
  Country: US (occurrence: US)
  Receive Date: 20130621
  Receipt Date: 20130801
  Transmission Date: 20140515
  Serious: Yes (Life-Threatening, Congenital Anomaly, Other)
  Sender: FDA-Public Use
  Company Number: US-PFIZER INC-2013184672

PATIENT
  Sex: Male

DRUGS (5)
  1. ZOLOFT [Suspect]
     Dosage: UNK
     Route: 064
     Dates: start: 2002
  2. CLOMID [Concomitant]
     Dosage: UNK
     Route: 064
  3. DIFLUCAN [Concomitant]
     Dosage: UNK
     Route: 064
  4. MACROBID [Concomitant]
     Dosage: UNK
     Route: 064
  5. AMPICILLIN [Concomitant]
     Dosage: UNK
     Route: 064

REACTIONS (4)
  - Maternal exposure during pregnancy [Unknown]
  - Heart disease congenital [Unknown]
  - Talipes [Unknown]
  - Premature baby [Unknown]
